FAERS Safety Report 6531251-8 (Version None)
Quarter: 2010Q1

REPORT INFORMATION
  Report Type: 
  Country: None (occurrence: None)
  Receive Date: 20100108
  Receipt Date: 20100104
  Transmission Date: 20100710
  Serious: Yes (Hospitalization)
  Sender: FDA-Public Use
  Company Number: DE-WYE-G05256210

PATIENT
  Sex: Male

DRUGS (2)
  1. RAPAMUNE [Suspect]
     Indication: RENAL TRANSPLANT
     Dates: start: 20091212, end: 20091201
  2. RAPAMUNE [Suspect]
     Dates: start: 20091201, end: 20100101

REACTIONS (4)
  - DYSPNOEA [None]
  - RASH [None]
  - SKIN EXFOLIATION [None]
  - SWELLING [None]
